FAERS Safety Report 14943663 (Version 1)
Quarter: 2018Q2

REPORT INFORMATION
  Report Type: Spontaneous
  Country: CN (occurrence: CN)
  Receive Date: 20180528
  Receipt Date: 20180528
  Transmission Date: 20180711
  Serious: Yes (Other)
  Sender: FDA-Public Use
  Company Number: CN-009507513-1805CHN012328

PATIENT

DRUGS (1)
  1. SINGULAIR [Suspect]
     Active Substance: MONTELUKAST SODIUM
     Route: 048

REACTIONS (4)
  - Tongue injury [Unknown]
  - Epilepsy [Unknown]
  - Epilepsy [Unknown]
  - Spinal column injury [Unknown]

NARRATIVE: CASE EVENT DATE: 2015
